FAERS Safety Report 4987825-9 (Version None)
Quarter: 2006Q2

REPORT INFORMATION
  Report Type: 
  Country: None (occurrence: None)
  Receive Date: 20060427
  Receipt Date: 20060427
  Transmission Date: 20061013
  Serious: No
  Sender: FDA-Public Use
  Company Number: None

PATIENT
  Sex: Male
  Weight: 86.2 kg

DRUGS (1)
  1. MARINOL [Suspect]
     Dosage: 10 MG   SINGLE    PO
     Route: 048
     Dates: start: 20060417, end: 20060417

REACTIONS (11)
  - ABDOMINAL DISTENSION [None]
  - ANXIETY [None]
  - APHASIA [None]
  - COGWHEEL RIGIDITY [None]
  - CONFUSIONAL STATE [None]
  - DIZZINESS [None]
  - DYSKINESIA [None]
  - DYSPNOEA [None]
  - EXTRAPYRAMIDAL DISORDER [None]
  - MUSCLE RIGIDITY [None]
  - TEARFULNESS [None]
